FAERS Safety Report 7598195-4 (Version None)
Quarter: 2011Q3

REPORT INFORMATION
  Report Type: 
  Country: None (occurrence: None)
  Receive Date: 20110708
  Receipt Date: 20110630
  Transmission Date: 20111222
  Serious: Yes (Other)
  Sender: FDA-Public Use
  Company Number: US-ABBOTT-11P-163-0836150-00

PATIENT
  Sex: Female
  Weight: 72.186 kg

DRUGS (7)
  1. MULTI-VITAMIN [Concomitant]
     Indication: VITAMIN SUPPLEMENTATION
     Route: 048
     Dates: start: 20060101
  2. HUMIRA [Suspect]
     Route: 058
     Dates: start: 20100601, end: 20110401
  3. LEXAPRO [Concomitant]
     Indication: DEPRESSION
     Route: 048
     Dates: start: 20090101
  4. DAYTRANA [Concomitant]
     Indication: ATTENTION DEFICIT/HYPERACTIVITY DISORDER
     Route: 048
     Dates: start: 20100101
  5. GLUCOSAMINE + CHONDROITIN [Concomitant]
     Indication: PRODUCT USED FOR UNKNOWN INDICATION
  6. HUMIRA [Suspect]
     Indication: CROHN'S DISEASE
     Route: 058
     Dates: start: 20110401, end: 20110630
  7. ZARAH [Concomitant]
     Indication: PRODUCT USED FOR UNKNOWN INDICATION

REACTIONS (16)
  - INJECTION SITE DISCOLOURATION [None]
  - PARAESTHESIA [None]
  - CHEST DISCOMFORT [None]
  - PAIN [None]
  - THROAT IRRITATION [None]
  - ERYTHEMA [None]
  - ANGIOEDEMA [None]
  - DRUG INEFFECTIVE [None]
  - DEVICE MALFUNCTION [None]
  - CROHN'S DISEASE [None]
  - MOTION SICKNESS [None]
  - MUSCULAR WEAKNESS [None]
  - INJECTION SITE PAIN [None]
  - ARTHRALGIA [None]
  - ANAPHYLACTIC REACTION [None]
  - FATIGUE [None]
